FAERS Safety Report 7080311-4 (Version None)
Quarter: 2010Q4

REPORT INFORMATION
  Report Type: 
  Country: None (occurrence: None)
  Receive Date: 20101025
  Receipt Date: 20101011
  Transmission Date: 20110411
  Serious: Yes (Other)
  Sender: FDA-Public Use
  Company Number: CIP10001982

PATIENT
  Sex: Female
  Weight: 61.2 kg

DRUGS (19)
  1. ACTONEL [Suspect]
     Indication: OSTEOPOROSIS
     Dosage: 35 MG, ORAL
     Route: 048
     Dates: start: 20030101, end: 20070101
  2. FOSAMAX [Suspect]
     Indication: OSTEOPOROSIS
     Dosage: 70 MG ONCE WEEKLY, ORAL
     Route: 048
     Dates: start: 20010101, end: 20030101
  3. BONIVA [Suspect]
     Indication: OSTEOPOROSIS
     Dosage: 150 MG ONCE MONTHLY
     Dates: start: 20070601, end: 20080801
  4. SYNTHROID [Concomitant]
  5. SIMVASTATIN [Concomitant]
  6. LISINOPRIL [Concomitant]
  7. EXELDERM (SULCONAZOLE NITRATE) [Concomitant]
  8. MOBIC [Concomitant]
  9. DEXAMETHASONE [Concomitant]
  10. DIAZEPAM [Concomitant]
  11. METHYLPREDNISOLONE [Concomitant]
  12. VIGAMOX [Concomitant]
  13. PROMETHAZINE [Concomitant]
  14. ERYTHROCIN (ERYTHROMYCIN) [Concomitant]
  15. CELEBREX [Concomitant]
  16. PREVACID [Concomitant]
  17. BENTYL [Concomitant]
  18. LIPITOR [Concomitant]
  19. PERIDEX [Concomitant]

REACTIONS (14)
  - CELLULITIS [None]
  - FEMUR FRACTURE [None]
  - JAW DISORDER [None]
  - LOW TURNOVER OSTEOPATHY [None]
  - MOUTH ULCERATION [None]
  - OEDEMA MOUTH [None]
  - ORAL PAIN [None]
  - ORAL TORUS [None]
  - OSTEOGENESIS IMPERFECTA [None]
  - OSTEONECROSIS OF JAW [None]
  - PRIMARY SEQUESTRUM [None]
  - STRESS FRACTURE [None]
  - TOOTH DISORDER [None]
  - WOUND DEHISCENCE [None]
